FAERS Safety Report 5369038-4 (Version None)
Quarter: 2007Q2

REPORT INFORMATION
  Report Type: 
  Country: None (occurrence: None)
  Receive Date: 20070625
  Receipt Date: 20070620
  Transmission Date: 20071010
  Serious: Yes (Death, Hospitalization)
  Sender: FDA-Public Use
  Company Number: US-BRISTOL-MYERS SQUIBB COMPANY-13818356

PATIENT
  Age: 45 Year
  Sex: Male
  Weight: 68 kg

DRUGS (15)
  1. CETUXIMAB [Suspect]
     Indication: OESOPHAGEAL CARCINOMA
     Route: 040
     Dates: start: 20070608, end: 20070608
  2. ATIVAN [Concomitant]
     Dates: start: 20070608
  3. CLINDAMYCIN HCL [Concomitant]
     Dates: start: 20070608
  4. DECADRON [Concomitant]
     Dates: start: 20070424
  5. EMEND [Concomitant]
     Dates: start: 20070424
  6. KLONOPIN [Concomitant]
     Dates: start: 20070613
  7. LACTULOSE [Concomitant]
     Dates: start: 20070608
  8. MINOCYCLINE HCL [Concomitant]
     Dates: start: 20070608
  9. NEXIUM [Concomitant]
     Dates: start: 20070424
  10. OXYCODONE HCL [Concomitant]
     Dates: start: 20070223
  11. REMERON [Concomitant]
     Dates: start: 20070613
  12. RITALIN [Concomitant]
     Dates: start: 20070613
  13. TUSSIONEX [Concomitant]
     Dates: start: 20070608
  14. ZOFRAN [Concomitant]
     Dates: start: 20051111
  15. ZYPREXA [Concomitant]
     Dates: start: 20070417

REACTIONS (2)
  - ACUTE RESPIRATORY DISTRESS SYNDROME [None]
  - DEATH [None]
